FAERS Safety Report 16556590 (Version 1)
Quarter: 2019Q3

REPORT INFORMATION
  Report Type: Other
  Country: KR (occurrence: KR)
  Receive Date: 20190711
  Receipt Date: 20190711
  Transmission Date: 20191004
  Serious: No
  Sender: FDA-Public Use
  Company Number: KR-AGG-10-2018-1000

PATIENT

DRUGS (10)
  1. ASPIRIN. [Concomitant]
     Active Substance: ASPIRIN
     Dosage: MAINTENANCE DOSE
  2. CLOPIDOGREL [Concomitant]
     Active Substance: CLOPIDOGREL BISULFATE
     Dosage: MAINTENANCE DOSE
  3. CARVEDILOL. [Concomitant]
     Active Substance: CARVEDILOL
  4. AGGRASTAT [Suspect]
     Active Substance: TIROFIBAN HYDROCHLORIDE
     Indication: ANTIPLATELET THERAPY
     Dosage: 0.4 MCG/KG/MIN FOR 30 MIN
     Route: 042
  5. CLOPIDOGREL [Concomitant]
     Active Substance: CLOPIDOGREL BISULFATE
     Dosage: LOADING DOSE
  6. AGGRASTAT [Suspect]
     Active Substance: TIROFIBAN HYDROCHLORIDE
     Indication: ANTIPLATELET THERAPY
     Dosage: 0.10 MCG/KG/MIN FOR 12H
     Route: 041
  7. PERINDOPRIL [Concomitant]
     Active Substance: PERINDOPRIL
  8. ASPIRIN. [Concomitant]
     Active Substance: ASPIRIN
     Dosage: LOADING DOSE
  9. HEPARIN [Concomitant]
     Active Substance: HEPARIN SODIUM
     Dosage: 75 U/KG
     Route: 040
  10. SIMVASTATIN/EZETIMIBE [Concomitant]
     Active Substance: SIMVASTATIN

REACTIONS (1)
  - Toothache [Unknown]
